FAERS Safety Report 11356695 (Version 1)
Quarter: 2015Q3

REPORT INFORMATION
  Report Type: Spontaneous
  Country: US (occurrence: US)
  Receive Date: 20150803
  Receipt Date: 20150803
  Transmission Date: 20151125
  Serious: Yes (Life-Threatening, Hospitalization)
  Sender: FDA-Public Use
  Company Number: US-ELI_LILLY_AND_COMPANY-US201207005936

PATIENT
  Age: 66 Year
  Sex: Female

DRUGS (20)
  1. ASENAPINE [Concomitant]
     Active Substance: ASENAPINE
  2. TOPIRAMATE. [Concomitant]
     Active Substance: TOPIRAMATE
  3. SYNTHROID [Concomitant]
     Active Substance: LEVOTHYROXINE SODIUM
  4. FERROUS SULFATE [Concomitant]
     Active Substance: FERROUS SULFATE\FERROUS SULFATE, DRIED
  5. RIVASTIGMINE TARTRATE. [Concomitant]
     Active Substance: RIVASTIGMINE TARTRATE
  6. PEXEVA [Concomitant]
     Active Substance: PAROXETINE MESYLATE
  7. PREMARIN [Concomitant]
     Active Substance: ESTROGENS, CONJUGATED
  8. FOLIC ACID. [Concomitant]
     Active Substance: FOLIC ACID
  9. FLONASE [Concomitant]
     Active Substance: FLUTICASONE PROPIONATE
  10. FISH OIL [Concomitant]
     Active Substance: FISH OIL
  11. VITAMIN D2 [Concomitant]
     Active Substance: ERGOCALCIFEROL
     Dosage: UNK, WEEKLY (1/W)
  12. NIACIN. [Concomitant]
     Active Substance: NIACIN
  13. OLANZAPINE. [Suspect]
     Active Substance: OLANZAPINE
     Indication: BIPOLAR I DISORDER
     Dosage: 20 MG, QD
  14. TEMAZEPAM. [Concomitant]
     Active Substance: TEMAZEPAM
     Dosage: 30 DF, SINGLE
  15. VITAMIN B12 [Concomitant]
     Active Substance: CYANOCOBALAMIN
     Dosage: UNK, WEEKLY (1/W)
  16. VITAMIN E [Concomitant]
     Active Substance: .ALPHA.-TOCOPHEROL
  17. PRAVASTATIN [Concomitant]
     Active Substance: PRAVASTATIN\PRAVASTATIN SODIUM
  18. CALCIUM CITRATE [Concomitant]
     Active Substance: CALCIUM CITRATE
  19. LORAZEPAM. [Concomitant]
     Active Substance: LORAZEPAM
  20. CENTRUM SILVER [Concomitant]
     Active Substance: VITAMINS

REACTIONS (3)
  - Paranoia [Recovered/Resolved]
  - Suicide attempt [Recovered/Resolved]
  - Confusional state [Recovered/Resolved]

NARRATIVE: CASE EVENT DATE: 20120531
